FAERS Safety Report 23171137 (Version 1)
Quarter: 2023Q4

REPORT INFORMATION
  Report Type: Spontaneous
  Country: US (occurrence: US)
  Receive Date: 20231110
  Receipt Date: 20231110
  Transmission Date: 20240109
  Serious: Yes (Hospitalization, Other)
  Sender: FDA-Public Use
  Company Number: US-Calliditas-2023CAL01399

PATIENT
  Age: 53 Year
  Sex: Female
  Weight: 100.2 kg

DRUGS (1)
  1. TARPEYO [Suspect]
     Active Substance: BUDESONIDE
     Indication: IgA nephropathy
     Dosage: 16 MG (4 MG CAPSULES) ONCE DAILY
     Route: 048
     Dates: start: 20230310

REACTIONS (8)
  - End stage renal disease [Unknown]
  - Dizziness [Unknown]
  - Asthenia [Unknown]
  - Fall [Unknown]
  - Illness [Unknown]
  - Drug ineffective [Unknown]
  - Prescribed underdose [Unknown]
  - Dialysis [Unknown]

NARRATIVE: CASE EVENT DATE: 20231025
